FAERS Safety Report 23476520 (Version 1)
Quarter: 2024Q1

REPORT INFORMATION
  Report Type: Report from Study
  Country: US (occurrence: US)
  Receive Date: 20240204
  Receipt Date: 20240204
  Transmission Date: 20240410
  Serious: No
  Sender: FDA-Public Use
  Company Number: US-EXELIXIS-CABO-23063314

PATIENT
  Sex: Male

DRUGS (25)
  1. COMETRIQ [Suspect]
     Active Substance: CABOZANTINIB S-MALATE
     Indication: Neurofibromatosis
     Dosage: 60 MG, QD
     Route: 048
  2. COMETRIQ [Suspect]
     Active Substance: CABOZANTINIB S-MALATE
     Dosage: 20 MG
  3. COMETRIQ [Suspect]
     Active Substance: CABOZANTINIB S-MALATE
     Dosage: 20 MG
     Dates: start: 20230713
  4. ALBUTEROL [Concomitant]
     Active Substance: ALBUTEROL
  5. BUTALBITAL AND ACETAMINOPHEN [Concomitant]
     Active Substance: ACETAMINOPHEN\BUTALBITAL
  6. CLOTRIMAZOLE [Concomitant]
     Active Substance: CLOTRIMAZOLE
  7. DOCUSATE SODIUM [Concomitant]
     Active Substance: DOCUSATE SODIUM
  8. DOXYCYCLINE [Concomitant]
     Active Substance: DOXYCYCLINE
  9. FLUTICASONE FUROATE\VILANTEROL TRIFENATATE [Concomitant]
     Active Substance: FLUTICASONE FUROATE\VILANTEROL TRIFENATATE
  10. FLUTICASONE PROPIONATE [Concomitant]
     Active Substance: FLUTICASONE PROPIONATE
  11. FUROSEMIDE [Concomitant]
     Active Substance: FUROSEMIDE
  12. GABAPENTIN [Concomitant]
     Active Substance: GABAPENTIN
  13. HYDROCORTISONE [Concomitant]
     Active Substance: HYDROCORTISONE
  14. KETOCONAZOLE [Concomitant]
     Active Substance: KETOCONAZOLE
  15. LORATADINE [Concomitant]
     Active Substance: LORATADINE
  16. METOPROLOL [Concomitant]
     Active Substance: METOPROLOL
  17. MUPIROCIN [Concomitant]
     Active Substance: MUPIROCIN
  18. OMEPRAZOLE [Concomitant]
     Active Substance: OMEPRAZOLE
  19. POTASSIUM CHLORIDE [Concomitant]
     Active Substance: POTASSIUM CHLORIDE
  20. PROMETHAZINE [Concomitant]
     Active Substance: PROMETHAZINE HYDROCHLORIDE
  21. ROFLUMILAST [Concomitant]
     Active Substance: ROFLUMILAST
  22. TAMSULOSIN [Concomitant]
     Active Substance: TAMSULOSIN
  23. TOPIRAMATE [Concomitant]
     Active Substance: TOPIRAMATE
  24. NORTRIPTYLINE [Concomitant]
     Active Substance: NORTRIPTYLINE
  25. TRIAMCINOLONE ACETONIDE [Concomitant]
     Active Substance: TRIAMCINOLONE ACETONIDE

REACTIONS (4)
  - Tooth disorder [Unknown]
  - Neoplasm [Unknown]
  - Post procedural complication [Unknown]
  - Off label use [Unknown]
